FAERS Safety Report 7919323-4 (Version None)
Quarter: 2011Q4

REPORT INFORMATION
  Report Type: 
  Country: None (occurrence: None)
  Receive Date: 20111115
  Receipt Date: 20111115
  Transmission Date: 20120403
  Serious: Yes (Hospitalization)
  Sender: FDA-Public Use
  Company Number: None

PATIENT
  Sex: Female
  Weight: 70.9 kg

DRUGS (15)
  1. LORAZEPAM [Concomitant]
  2. SORAFENIB [Suspect]
     Indication: NON-SMALL CELL LUNG CANCER
     Dosage: SORAFENIB 400 MG BID THEN DAILY PO
     Route: 048
     Dates: start: 20111011
  3. SORAFENIB [Suspect]
     Indication: NON-SMALL CELL LUNG CANCER
     Dosage: SORAFENIB 400 MG BID THEN DAILY PO
     Route: 048
     Dates: start: 20110928
  4. LOSARTAN [Concomitant]
  5. UREA CREAM [Concomitant]
  6. AMLODIPINE [Concomitant]
  7. BENZONATATE [Concomitant]
  8. WARFARIN SODIUM [Concomitant]
  9. TYLENOL W/ CODEINE NO. 3 [Concomitant]
  10. CLOBETASOL PROPIONATE [Concomitant]
  11. FOLIC ACID [Concomitant]
  12. OXYCODONE HCL [Concomitant]
  13. LEVOTHYROXINE SODIUM [Concomitant]
  14. OMEPRAZOLE [Concomitant]
  15. ALBUTEROL INHALER [Concomitant]

REACTIONS (3)
  - PULMONARY EMBOLISM [None]
  - PLEURAL EFFUSION [None]
  - DISEASE PROGRESSION [None]
